FAERS Safety Report 6197320-X (Version None)
Quarter: 2009Q2

REPORT INFORMATION
  Report Type: 
  Country: None (occurrence: None)
  Receive Date: 20090518
  Receipt Date: 20090505
  Transmission Date: 20091009
  Serious: Yes (Other)
  Sender: FDA-Public Use
  Company Number: 2009AP001826

PATIENT
  Age: 36 Year
  Sex: Female

DRUGS (4)
  1. CITALOPRAM HYDROBROMIDE [Suspect]
     Indication: POSTPARTUM DEPRESSION
     Dosage: 20 MG; PO
     Route: 048
     Dates: start: 20090330, end: 20090331
  2. MIGRALEVE (MIGRALEVE) [Suspect]
     Indication: MIGRAINE
     Dosage: PO
     Route: 048
     Dates: start: 20090330, end: 20090331
  3. ETHINYL ESTRADIOL TAB [Concomitant]
  4. GESTODENE (GESTODENE) [Concomitant]

REACTIONS (6)
  - DIARRHOEA [None]
  - DYSARTHRIA [None]
  - FEAR [None]
  - FEELING ABNORMAL [None]
  - MYDRIASIS [None]
  - VOMITING [None]
